FAERS Safety Report 8071327-X (Version None)
Quarter: 2012Q1

REPORT INFORMATION
  Report Type: 
  Country: None (occurrence: None)
  Receive Date: 20120125
  Receipt Date: 20120116
  Transmission Date: 20120608
  Serious: Yes (Hospitalization, Other)
  Sender: FDA-Public Use
  Company Number: CA-ASTRAZENECA-2011SE55023

PATIENT
  Age: 67 Year
  Sex: Female

DRUGS (7)
  1. CALCIUM PLUS VITAMIN D [Concomitant]
  2. DIAZEPAM [Concomitant]
     Route: 048
  3. CETIRIZINE [Concomitant]
  4. NITROFURANTOIN [Concomitant]
     Route: 048
  5. ARIMIDEX [Suspect]
     Route: 048
     Dates: start: 20100301
  6. OXAZEPAM [Concomitant]
  7. FLUOXETINE [Concomitant]
     Route: 048

REACTIONS (1)
  - MEDICATION RESIDUE [None]
